FAERS Safety Report 8402132-X (Version None)
Quarter: 2012Q2

REPORT INFORMATION
  Report Type: 
  Country: None (occurrence: None)
  Receive Date: 20120529
  Receipt Date: 20120521
  Transmission Date: 20120825
  Serious: No
  Sender: FDA-Public Use
  Company Number: 2012SP027126

PATIENT
  Age: 45 Year
  Sex: Female

DRUGS (4)
  1. SYCREST (ASENAPINE /05706901/) [Suspect]
     Indication: BIPOLAR DISORDER
     Dosage: 10 MG;BID;SL, 5 MG;SID;SL
     Route: 060
     Dates: start: 20120401, end: 20120501
  2. SYCREST (ASENAPINE /05706901/) [Suspect]
     Indication: BIPOLAR DISORDER
     Dosage: 10 MG;BID;SL, 5 MG;SID;SL
     Route: 060
     Dates: start: 20120401, end: 20120401
  3. LITHIUM CARBONATE [Concomitant]
  4. ALPRAZOLAM [Concomitant]

REACTIONS (2)
  - RASH [None]
  - SEDATION [None]
